FAERS Safety Report 11667190 (Version 2)
Quarter: 2015Q4

REPORT INFORMATION
  Report Type: Spontaneous
  Country: US (occurrence: US)
  Receive Date: 20151027
  Receipt Date: 20151029
  Transmission Date: 20160304
  Serious: No
  Sender: FDA-Public Use
  Company Number: ALCN2015US006686

PATIENT
  Sex: Male

DRUGS (1)
  1. VIGAMOX [Suspect]
     Active Substance: MOXIFLOXACIN HYDROCHLORIDE
     Indication: HORNER^S SYNDROME
     Dosage: 1 GTT, QID
     Route: 047

REACTIONS (3)
  - Horner^s syndrome [Unknown]
  - Off label use [Unknown]
  - Therapeutic response unexpected [Unknown]
